FAERS Safety Report 9504509 (Version 2)
Quarter: 2013Q3

REPORT INFORMATION
  Report Type: Report from Study
  Country: US (occurrence: US)
  Receive Date: 20130906
  Receipt Date: 20130920
  Transmission Date: 20140515
  Serious: Yes (Hospitalization)
  Sender: FDA-Public Use
  Company Number: US-ROCHE-1271217

PATIENT
  Sex: Female

DRUGS (1)
  1. LUCENTIS [Suspect]
     Indication: PRODUCT USED FOR UNKNOWN INDICATION
     Dosage: DOSAGE 1: 2MONTHS
     Route: 065
     Dates: start: 201304, end: 201306

REACTIONS (4)
  - Diabetes mellitus [Unknown]
  - Hypotension [Unknown]
  - Blood glucose decreased [Unknown]
  - Drug dose omission [Unknown]
